FAERS Safety Report 14757619 (Version 3)
Quarter: 2019Q1

REPORT INFORMATION
  Report Type: Spontaneous
  Country: HR (occurrence: HR)
  Receive Date: 20180413
  Receipt Date: 20190226
  Transmission Date: 20190417
  Serious: Yes (Death, Hospitalization, Other)
  Sender: FDA-Public Use
  Company Number: HR-APOTEX-2018AP010013

PATIENT
  Age: 44 Year
  Sex: Male
  Weight: 75 kg

DRUGS (17)
  1. FLUPHENAZINE [Interacting]
     Active Substance: FLUPHENAZINE
     Indication: SCHIZOPHRENIA
     Dosage: 40 MG, QD
     Route: 048
  2. BROMAZEPAM [Concomitant]
     Active Substance: BROMAZEPAM
     Indication: ANXIETY
  3. PAROXETINE. [Interacting]
     Active Substance: PAROXETINE
     Indication: DEPRESSION
  4. DIAZEPAM. [Concomitant]
     Active Substance: DIAZEPAM
     Indication: INSOMNIA
  5. HALOPERIDOL. [Interacting]
     Active Substance: HALOPERIDOL
     Indication: MENTAL DISORDER
     Dosage: 12 MG, QD
     Route: 048
  6. ALPRAZOLAM. [Concomitant]
     Active Substance: ALPRAZOLAM
     Indication: MENTAL DISORDER
     Dosage: 6 MG, QD
     Route: 048
  7. BIPERIDEN [Concomitant]
     Active Substance: BIPERIDEN
     Indication: MENTAL DISORDER
  8. ALPRAZOLAM. [Concomitant]
     Active Substance: ALPRAZOLAM
     Indication: ANXIETY
  9. PAROXETINE. [Suspect]
     Active Substance: PAROXETINE
     Indication: SCHIZOPHRENIA
     Dosage: 20 MG, QD
     Route: 048
  10. HALOPERIDOL. [Interacting]
     Active Substance: HALOPERIDOL
     Indication: MENTAL DISORDER
  11. BROMAZEPAM [Concomitant]
     Active Substance: BROMAZEPAM
     Indication: SCHIZOPHRENIA
     Dosage: 36 MG, QD
     Route: 048
  12. ALPRAZOLAM. [Concomitant]
     Active Substance: ALPRAZOLAM
     Indication: MENTAL DISORDER
  13. OLANZAPINE. [Interacting]
     Active Substance: OLANZAPINE
     Indication: SCHIZOPHRENIA
     Dosage: 30 MG, QD
     Route: 048
  14. BIPERIDEN [Concomitant]
     Active Substance: BIPERIDEN
     Indication: MENTAL DISORDER
     Dosage: 6 MG, QD
     Route: 048
  15. FLUPHENAZINE HYDROCHLORIDE. [Interacting]
     Active Substance: FLUPHENAZINE HYDROCHLORIDE
     Dosage: 1 DF, INTRAMUSCULAR DEPOT INJECTIONS OF FLUPHENAZINE 25MG TWICE MONTHLY
     Route: 030
  16. FLUPHENAZINE HYDROCHLORIDE. [Interacting]
     Active Substance: FLUPHENAZINE HYDROCHLORIDE
     Indication: SCHIZOPHRENIA
     Dosage: 25 MG, Q.M.T.
     Route: 030
  17. DIAZEPAM. [Concomitant]
     Active Substance: DIAZEPAM
     Indication: SCHIZOPHRENIA
     Dosage: 30 MG, QD
     Route: 048

REACTIONS (23)
  - Ketonuria [Fatal]
  - Hyponatraemia [Fatal]
  - Endotracheal intubation [Fatal]
  - Coma [Unknown]
  - Nausea [Unknown]
  - Fatigue [Unknown]
  - Pancreatitis acute [Fatal]
  - Hypotension [Fatal]
  - Inappropriate antidiuretic hormone secretion [Fatal]
  - Brain oedema [Fatal]
  - Abdominal pain [Unknown]
  - Hypoglycaemia [Fatal]
  - Hyperglycaemia [Fatal]
  - Drug interaction [Fatal]
  - Bradypnoea [Fatal]
  - Disorientation [Unknown]
  - Amylase increased [Unknown]
  - Hypopnoea [Unknown]
  - Cardiac arrest [Fatal]
  - Papilloedema [Unknown]
  - Vertigo [Unknown]
  - Loss of consciousness [Fatal]
  - Pancreatitis haemorrhagic [Fatal]
